FAERS Safety Report 7812676-7 (Version None)
Quarter: 2011Q4

REPORT INFORMATION
  Report Type: 
  Country: None (occurrence: None)
  Receive Date: 20111013
  Receipt Date: 20110929
  Transmission Date: 20120403
  Serious: Yes (Other)
  Sender: FDA-Public Use
  Company Number: CA-ELI_LILLY_AND_COMPANY-CA201109008365

PATIENT
  Sex: Male

DRUGS (8)
  1. CITALOPRAM [Concomitant]
  2. EFFEXOR [Concomitant]
  3. LYRICA [Concomitant]
  4. MONOCOR [Concomitant]
  5. PERINDOPRIL ERBUMINE [Concomitant]
  6. ZYPREXA [Suspect]
     Indication: INSOMNIA
     Dosage: 5 MG, QD
  7. ZYPREXA [Suspect]
     Dosage: 10 MG, QD
  8. CYMBALTA [Concomitant]

REACTIONS (10)
  - OFF LABEL USE [None]
  - DIZZINESS [None]
  - DIABETIC KETOACIDOSIS [None]
  - CEREBROVASCULAR ACCIDENT [None]
  - DIABETES MELLITUS [None]
  - PAIN [None]
  - MYOCARDIAL INFARCTION [None]
  - HYPERGLYCAEMIA [None]
  - WEIGHT INCREASED [None]
  - BLOOD IRON DECREASED [None]
